FAERS Safety Report 14011111 (Version 6)
Quarter: 2018Q4

REPORT INFORMATION
  Report Type: Spontaneous
  Country: US (occurrence: US)
  Receive Date: 20170926
  Receipt Date: 20181203
  Transmission Date: 20190204
  Serious: Yes (Other)
  Sender: FDA-Public Use
  Company Number: US-PFIZER INC-2017415567

PATIENT
  Age: 73 Year
  Sex: Female

DRUGS (1)
  1. SUTENT [Suspect]
     Active Substance: SUNITINIB MALATE
     Indication: RENAL CANCER
     Dosage: 37.5 MG, CYCLIC (TAKE 3 CAPSULES BY MOUTH DAILY FOR 28 DAYS FOLLOWED BY 14 DAYS OFF)
     Route: 048
     Dates: start: 201709

REACTIONS (6)
  - Stomatitis [Unknown]
  - Blister [Unknown]
  - Diarrhoea [Recovered/Resolved]
  - Oral pain [Unknown]
  - Hypertension [Unknown]
  - Arthritis [Unknown]
